FAERS Safety Report 5556910-5 (Version None)
Quarter: 2007Q4

REPORT INFORMATION
  Report Type: 
  Country: None (occurrence: None)
  Receive Date: 20071214
  Receipt Date: 20071206
  Transmission Date: 20080405
  Serious: Yes (Hospitalization, Disabling, Other)
  Sender: FDA-Public Use
  Company Number: PHBS2007SV20017

PATIENT
  Age: 50 Year
  Sex: Female

DRUGS (6)
  1. TEGRETOL [Suspect]
     Indication: EPILEPSY
     Dosage: 400 MG, TID
     Route: 048
     Dates: start: 19910101
  2. PHENOBARBITAL TAB [Concomitant]
     Dosage: 250 MG PER DAY
  3. CLOBAZAN [Concomitant]
     Dosage: 10 MG, QD
  4. CLOBAZAN [Concomitant]
     Dosage: 1.5 MG, QD
  5. VALPROIC ACID [Concomitant]
     Dosage: 500 MG, Q12H
  6. PHENITOIN [Concomitant]

REACTIONS (6)
  - COMA [None]
  - COORDINATION ABNORMAL [None]
  - DYSARTHRIA [None]
  - INTRACRANIAL PRESSURE INCREASED [None]
  - PNEUMONIA [None]
  - SOMNOLENCE [None]
